FAERS Safety Report 18995932 (Version 1)
Quarter: 2021Q1

REPORT INFORMATION
  Report Type: Spontaneous
  Country: US (occurrence: US)
  Receive Date: 20210311
  Receipt Date: 20210311
  Transmission Date: 20210420
  Serious: No
  Sender: FDA-Public Use
  Company Number: US-GLAXOSMITHKLINE-USCH2021012058

PATIENT
  Age: 59 Year
  Sex: Female

DRUGS (2)
  1. NICODERM CQ [Suspect]
     Active Substance: NICOTINE
     Indication: SMOKING CESSATION THERAPY
     Dosage: UNK
     Dates: start: 20210306
  2. NICODERM CQ [Suspect]
     Active Substance: NICOTINE
     Dosage: UNK

REACTIONS (6)
  - Application site rash [Unknown]
  - Swelling [Unknown]
  - Pruritus [Unknown]
  - Wrong technique in product usage process [Unknown]
  - Product complaint [Unknown]
  - Product use issue [Unknown]

NARRATIVE: CASE EVENT DATE: 20210306
